FAERS Safety Report 11588355 (Version 1)
Quarter: 2015Q4

REPORT INFORMATION
  Report Type: Spontaneous
  Country: US (occurrence: None)
  Receive Date: 20151001
  Receipt Date: 20151001
  Transmission Date: 20160304
  Serious: Yes (Disabling)
  Sender: FDA-Public Use
  Company Number: None

PATIENT
  Age: 40 Year
  Sex: Female
  Weight: 50.8 kg

DRUGS (2)
  1. OMNIPAQUE [Suspect]
     Active Substance: IOHEXOL
     Indication: SCAN WITH CONTRAST
     Dates: start: 20140921, end: 20140921
  2. ONE A DAY VITAMIN (WOMEN) [Concomitant]

REACTIONS (27)
  - Vascular injury [None]
  - Blood iron decreased [None]
  - Coordination abnormal [None]
  - Thrombosis [None]
  - Red blood cell abnormality [None]
  - Temperature regulation disorder [None]
  - Mean platelet volume increased [None]
  - Pain [None]
  - Product quality issue [None]
  - Serum ferritin increased [None]
  - Autonomic neuropathy [None]
  - Internal haemorrhage [None]
  - Toxicity to various agents [None]
  - Aspartate aminotransferase increased [None]
  - Chills [None]
  - Night sweats [None]
  - Generalised oedema [None]
  - Joint swelling [None]
  - Burning sensation [None]
  - Hypoaesthesia [None]
  - Bedridden [None]
  - Skin ulcer [None]
  - Insomnia [None]
  - Product contamination [None]
  - Paraesthesia [None]
  - Haemolysis [None]
  - Blood urine [None]

NARRATIVE: CASE EVENT DATE: 20140921
